FAERS Safety Report 25691563 (Version 1)
Quarter: 2025Q3

REPORT INFORMATION
  Report Type: Spontaneous
  Country: EU (occurrence: EU)
  Receive Date: 20250818
  Receipt Date: 20250818
  Transmission Date: 20251021
  Serious: Yes (Life-Threatening)
  Sender: ORGANON
  Company Number: EU-ORGANON-O2312SWE001409

PATIENT
  Age: 7 Month
  Sex: Male
  Weight: 15 kg

DRUGS (2)
  1. EBASTINE [Suspect]
     Active Substance: EBASTINE
     Indication: Eczema
     Dates: start: 20231212
  2. EBASTINE [Suspect]
     Active Substance: EBASTINE
     Indication: Urticaria
     Dates: start: 20231213

REACTIONS (9)
  - Drug hypersensitivity [Not Recovered/Not Resolved]
  - Pruritus [Not Recovered/Not Resolved]
  - Swelling face [Not Recovered/Not Resolved]
  - Rash [Not Recovered/Not Resolved]
  - Gastrooesophageal reflux disease [Unknown]
  - Illness [Unknown]
  - Gastrointestinal disorder [Unknown]
  - Product prescribing issue [Unknown]
  - Product use issue [Unknown]

NARRATIVE: CASE EVENT DATE: 20231213
